FAERS Safety Report 6211771-6 (Version None)
Quarter: 2009Q2

REPORT INFORMATION
  Report Type: 
  Country: None (occurrence: None)
  Receive Date: 20090528
  Receipt Date: 20090518
  Transmission Date: 20091009
  Serious: Yes (Hospitalization)
  Sender: FDA-Public Use
  Company Number: 2009AL001586

PATIENT
  Age: 72 Year
  Sex: Female

DRUGS (11)
  1. DIGOXIN [Suspect]
     Indication: HEART RATE IRREGULAR
     Dosage: 0.125MG, DAILY, PO
     Route: 048
  2. RAMIPRIL [Concomitant]
  3. LEVAQUIN [Concomitant]
  4. COREG [Concomitant]
  5. MAGNESIUM OXIDE [Concomitant]
  6. LASIX [Concomitant]
  7. POTASSIUM CHLORIDE [Concomitant]
  8. ASPIRIN [Concomitant]
  9. PLAVIX [Concomitant]
  10. BYETTA [Concomitant]
  11. JANUVIA [Concomitant]

REACTIONS (10)
  - ANXIETY [None]
  - CARDIAC FAILURE CONGESTIVE [None]
  - ECONOMIC PROBLEM [None]
  - EJECTION FRACTION DECREASED [None]
  - IMPLANT SITE ERYTHEMA [None]
  - MULTIPLE INJURIES [None]
  - MYOCARDIAL INFARCTION [None]
  - PAIN [None]
  - POSTOPERATIVE FEVER [None]
  - THERAPEUTIC AGENT TOXICITY [None]
